FAERS Safety Report 8482162-2 (Version None)
Quarter: 2012Q3

REPORT INFORMATION
  Report Type: 
  Country: None (occurrence: None)
  Receive Date: 20120702
  Receipt Date: 20120618
  Transmission Date: 20120928
  Serious: Yes (Hospitalization, Other)
  Sender: FDA-Public Use
  Company Number: JP-PFIZER INC-2012002170

PATIENT
  Age: 70 Year
  Sex: Male
  Weight: 65 kg

DRUGS (3)
  1. S-1 [Suspect]
     Indication: GASTRIC CANCER STAGE III
     Dosage: 80 MG/M2 ON DAYS 1-14
     Route: 048
  2. CISPLATIN [Suspect]
     Indication: GASTRIC CANCER STAGE III
     Dosage: 60 MG/M2 ON DAY 1
     Route: 042
  3. DOCETAXEL [Suspect]
     Indication: GASTRIC CANCER STAGE III
     Dosage: 40 MG/M2 ON DAY 1
     Route: 042

REACTIONS (6)
  - DECREASED APPETITE [None]
  - DIARRHOEA [None]
  - SHOCK [None]
  - TUMOUR NECROSIS [None]
  - GASTRIC PERFORATION [None]
  - INFECTIOUS PERITONITIS [None]
